FAERS Safety Report 6659958-2 (Version None)
Quarter: 2010Q1

REPORT INFORMATION
  Report Type: 
  Country: None (occurrence: None)
  Receive Date: 20100331
  Receipt Date: 20100111
  Transmission Date: 20100710
  Serious: Yes (Death)
  Sender: FDA-Public Use
  Company Number: FR-GENENTECH-296805

PATIENT
  Sex: Male

DRUGS (6)
  1. RITUXIMAB [Suspect]
     Indication: B-CELL LYMPHOMA
     Dosage: 730 UNK, QD
     Route: 042
     Dates: start: 20070122
  2. RITUXIMAB [Suspect]
     Dosage: 730 UNK, QD
     Route: 042
     Dates: start: 20070525
  3. DOXORUBICIN HCL [Suspect]
     Indication: B-CELL LYMPHOMA
     Dosage: 95 UNK, QD
     Route: 042
     Dates: start: 20070127
  4. CYCLOPHOSPHAMIDE [Suspect]
     Indication: B-CELL LYMPHOMA
     Dosage: 1465 UNK, QD
     Route: 042
     Dates: start: 20070127
  5. VINCRISTINE [Suspect]
     Indication: B-CELL LYMPHOMA
     Dosage: 2 UNK, QD
     Route: 042
     Dates: start: 20070127
  6. PREDNISONE TAB [Suspect]
     Indication: B-CELL LYMPHOMA
     Dosage: 80 UNK, QD
     Route: 042
     Dates: start: 20070127

REACTIONS (1)
  - SUDDEN DEATH [None]
